FAERS Safety Report 21467108 (Version 2)
Quarter: 2023Q1

REPORT INFORMATION
  Report Type: Spontaneous
  Country: JP (occurrence: JP)
  Receive Date: 20221017
  Receipt Date: 20230126
  Transmission Date: 20230418
  Serious: Yes (Other)
  Sender: FDA-Public Use
  Company Number: JP-OTSUKA-2022_048245

PATIENT
  Age: 7 Year
  Sex: Male

DRUGS (3)
  1. BUSULFEX [Suspect]
     Active Substance: BUSULFAN
     Indication: Cord blood transplant therapy
     Dosage: 3.8 MG/KG/DAY FOR 4 DAYS
     Route: 065
  2. MELPHALAN [Concomitant]
     Active Substance: MELPHALAN
     Indication: Cord blood transplant therapy
     Dosage: 90 MG/M2/DAY FOR 2 DAYS
     Route: 065
  3. MELPHALAN [Concomitant]
     Active Substance: MELPHALAN
     Dosage: 70 MG/M2/DAY FOR 2 DAYS
     Route: 065

REACTIONS (1)
  - Post transplant lymphoproliferative disorder [Recovered/Resolved]
